FAERS Safety Report 8953681 (Version 2)
Quarter: 2013Q1

REPORT INFORMATION
  Report Type: Spontaneous
  Country: JP (occurrence: JP)
  Receive Date: 20121206
  Receipt Date: 20130102
  Transmission Date: 20140127
  Serious: Yes (Other)
  Sender: FDA-Public Use
  Company Number: JP-BAXTER-2012BAX023348

PATIENT
  Sex: Female

DRUGS (2)
  1. DIANEAL-N PD-4 2.5 PD SOLUTION [Suspect]
     Route: 033
  2. EXTRANEAL [Suspect]
     Route: 033

REACTIONS (2)
  - Pyrexia [Unknown]
  - Abdominal pain [Unknown]
